FAERS Safety Report 7785906-8 (Version None)
Quarter: 2011Q3

REPORT INFORMATION
  Report Type: 
  Country: None (occurrence: None)
  Receive Date: 20110929
  Receipt Date: 20110921
  Transmission Date: 20111222
  Serious: Yes (Other)
  Sender: FDA-Public Use
  Company Number: US-AMGEN-USASP2011041027

PATIENT
  Sex: Female

DRUGS (2)
  1. ENBREL [Suspect]
     Indication: PSORIATIC ARTHROPATHY
     Dosage: 50 MG, 2 TIMES/WK
     Dates: start: 20070101
  2. ENBREL [Suspect]
     Indication: PSORIASIS
     Dosage: UNK

REACTIONS (5)
  - HAEMOCHROMATOSIS [None]
  - ASTHMA [None]
  - GALLBLADDER OPERATION [None]
  - ABDOMINAL DISCOMFORT [None]
  - INFLUENZA [None]
